FAERS Safety Report 8414985-X (Version None)
Quarter: 2012Q2

REPORT INFORMATION
  Report Type: 
  Country: None (occurrence: None)
  Receive Date: 20120606
  Receipt Date: 20120321
  Transmission Date: 20120825
  Serious: No
  Sender: FDA-Public Use
  Company Number: US-GLAXOSMITHKLINE-A0950288A

PATIENT
  Age: 4 Year
  Sex: Female

DRUGS (1)
  1. LAMOTRIGINE [Suspect]
     Indication: CONVULSION
     Route: 065

REACTIONS (5)
  - PRODUCT QUALITY ISSUE [None]
  - COORDINATION ABNORMAL [None]
  - TREMOR [None]
  - HYPERSOMNIA [None]
  - DIZZINESS [None]
